FAERS Safety Report 8047020-6 (Version None)
Quarter: 2012Q1

REPORT INFORMATION
  Report Type: 
  Country: None (occurrence: None)
  Receive Date: 20120116
  Receipt Date: 20120102
  Transmission Date: 20120608
  Serious: Yes (Hospitalization)
  Sender: FDA-Public Use
  Company Number: FR-MYLANLABS-2012S1000009

PATIENT
  Age: 2 Year
  Sex: Male
  Weight: 10 kg

DRUGS (7)
  1. SECTRAL [Concomitant]
     Dates: start: 20100101
  2. NALBUPHINE [Concomitant]
  3. IFOSFAMIDE [Suspect]
     Route: 042
     Dates: start: 20111107, end: 20111108
  4. CARBOPLATIN [Suspect]
     Route: 042
     Dates: start: 20111107, end: 20111108
  5. ACETAMINOPHEN [Concomitant]
  6. VOGALENE [Concomitant]
  7. ETOPOSIDE [Suspect]
     Route: 042
     Dates: start: 20111107, end: 20111108

REACTIONS (4)
  - STATUS EPILEPTICUS [None]
  - ENCEPHALOPATHY [None]
  - HYPONATRAEMIA [None]
  - RENAL TUBULAR DISORDER [None]
